FAERS Safety Report 18265472 (Version 1)
Quarter: 2020Q3

REPORT INFORMATION
  Report Type: Other
  Country: US (occurrence: US)
  Receive Date: 20200914
  Receipt Date: 20200914
  Transmission Date: 20201103
  Serious: No
  Sender: FDA-Public Use
  Company Number: US-LEADIANT BIOSCIENCES INC-2020STPI000218

PATIENT
  Sex: Female

DRUGS (3)
  1. LEXAPRO [Concomitant]
     Active Substance: ESCITALOPRAM OXALATE
  2. MATULANE [Suspect]
     Active Substance: PROCARBAZINE HYDROCHLORIDE
     Indication: BRAIN NEOPLASM MALIGNANT
     Dosage: 50 MILLIGRAM, QD, 8 TO 21 OF A 6 WEEK CYCLE
     Dates: start: 20200204
  3. TYLENOL 8HR [Concomitant]
     Active Substance: ACETAMINOPHEN

REACTIONS (3)
  - Headache [Unknown]
  - Nausea [Unknown]
  - Constipation [Unknown]
